FAERS Safety Report 5261939-0 (Version None)
Quarter: 2007Q1

REPORT INFORMATION
  Report Type: 
  Country: None (occurrence: None)
  Receive Date: 20070308
  Receipt Date: 20070221
  Transmission Date: 20070707
  Serious: Yes (Hospitalization)
  Sender: FDA-Public Use
  Company Number: CIO06015900

PATIENT
  Age: 53 Year
  Sex: Male
  Weight: 113.8 kg

DRUGS (3)
  1. METAMUCIL-2 [Suspect]
     Indication: CHANGE OF BOWEL HABIT
     Dosage: 1 TSP, 3/DAY, ORAL
     Route: 048
     Dates: start: 20041110, end: 20061031
  2. ANTIHYPERTENSIVES [Concomitant]
  3. TOPROL-XL [Concomitant]

REACTIONS (11)
  - BLOOD POTASSIUM DECREASED [None]
  - CHOLECYSTITIS [None]
  - CONSTIPATION [None]
  - DIVERTICULUM [None]
  - FOREIGN BODY TRAUMA [None]
  - GAMMA-GLUTAMYLTRANSFERASE INCREASED [None]
  - ILEUS [None]
  - INTESTINAL OBSTRUCTION [None]
  - NEUTROPHIL COUNT INCREASED [None]
  - SMALL INTESTINAL OBSTRUCTION [None]
  - WHITE BLOOD CELL COUNT INCREASED [None]
